FAERS Safety Report 19025227 (Version 2)
Quarter: 2021Q2

REPORT INFORMATION
  Report Type: Report from Study
  Country: GB (occurrence: JP)
  Receive Date: 20210318
  Receipt Date: 20210414
  Transmission Date: 20210717
  Serious: Yes (Other)
  Sender: FDA-Public Use
  Company Number: JP-ASTELLAS-2021US009513

PATIENT
  Age: 64 Year
  Sex: Female

DRUGS (1)
  1. ERLOTINIB [Suspect]
     Active Substance: ERLOTINIB
     Indication: NON-SMALL CELL LUNG CANCER METASTATIC
     Dosage: UNKNOWN DOSE AND FREQUENCY, TOTAL 39900 MG. THE PATIENT RECEIVED MOST RECENT DOSE ON 10/OCT/2017
     Route: 048
     Dates: start: 20160502

REACTIONS (5)
  - Pneumonia [Recovered/Resolved]
  - Dizziness [Not Recovered/Not Resolved]
  - Dermatitis acneiform [Not Recovered/Not Resolved]
  - Malaise [Not Recovered/Not Resolved]
  - Diarrhoea [Not Recovered/Not Resolved]

NARRATIVE: CASE EVENT DATE: 20160506
